FAERS Safety Report 22292462 (Version 1)
Quarter: 2023Q2

REPORT INFORMATION
  Report Type: Spontaneous
  Country: US (occurrence: US)
  Receive Date: 20230508
  Receipt Date: 20230508
  Transmission Date: 20230721
  Serious: No
  Sender: FDA-Public Use
  Company Number: US-AUROBINDO-AUR-APL-2023-001618

PATIENT
  Age: 97 Year
  Sex: Female
  Weight: 58 kg

DRUGS (1)
  1. DEXTROMETHORPHAN HYDROBROMIDE AND GUAIFENESIN [Suspect]
     Active Substance: DEXTROMETHORPHAN HYDROBROMIDE\GUAIFENESIN
     Indication: Upper respiratory tract infection
     Dosage: 600/30 MILLIGRAM
     Route: 065
     Dates: start: 20230201, end: 20230201

REACTIONS (2)
  - Dizziness [Unknown]
  - Overdose [Unknown]
